FAERS Safety Report 11866159 (Version 2)
Quarter: 2017Q1

REPORT INFORMATION
  Report Type: Report from Study
  Country: US (occurrence: US)
  Receive Date: 20151223
  Receipt Date: 20170201
  Transmission Date: 20170428
  Serious: No
  Sender: FDA-Public Use
  Company Number: US-EXELIXIS-CABO-15005718

PATIENT
  Age: 78 Year
  Sex: Female

DRUGS (4)
  1. COMETRIQ [Suspect]
     Active Substance: CABOZANTINIB S-MALATE
     Dosage: 60 MG, QD
     Route: 048
     Dates: start: 20151022, end: 2015
  2. COMETRIQ [Suspect]
     Active Substance: CABOZANTINIB S-MALATE
     Dosage: 60 MG, QD
     Route: 048
     Dates: start: 201512, end: 20160224
  3. COMETRIQ [Suspect]
     Active Substance: CABOZANTINIB S-MALATE
     Dosage: 60 MG, QD
     Route: 048
     Dates: start: 201602, end: 201603
  4. COMETRIQ [Suspect]
     Active Substance: CABOZANTINIB S-MALATE
     Indication: THYROID CANCER
     Dosage: 100 MG, QD
     Route: 048
     Dates: start: 20150922, end: 201510

REACTIONS (22)
  - Oral mucosal eruption [Unknown]
  - Rash [Unknown]
  - Dyspepsia [Unknown]
  - Vomiting [Unknown]
  - Stomatitis [Not Recovered/Not Resolved]
  - Dysgeusia [Unknown]
  - Abdominal discomfort [Unknown]
  - Alopecia [Not Recovered/Not Resolved]
  - Nasal dryness [Unknown]
  - Dry throat [Unknown]
  - Contusion [Unknown]
  - Paraesthesia [Unknown]
  - Memory impairment [Unknown]
  - Dry mouth [Recovered/Resolved]
  - Nasal discomfort [Unknown]
  - Hypoaesthesia [Unknown]
  - Oropharyngeal pain [Not Recovered/Not Resolved]
  - Nausea [Not Recovered/Not Resolved]
  - Decreased appetite [Unknown]
  - Irritable bowel syndrome [Unknown]
  - Rhinorrhoea [Unknown]
  - Tongue discomfort [Not Recovered/Not Resolved]

NARRATIVE: CASE EVENT DATE: 2015
